FAERS Safety Report 25628452 (Version 1)
Quarter: 2025Q3

REPORT INFORMATION
  Report Type: Spontaneous
  Country: JP (occurrence: JP)
  Receive Date: 20250731
  Receipt Date: 20250731
  Transmission Date: 20251021
  Serious: Yes (Death, Other)
  Sender: JAZZ
  Company Number: JP-JAZZ PHARMACEUTICALS-2025-JP-018650

PATIENT
  Age: 70 Year
  Sex: Male

DRUGS (2)
  1. VYXEOS [Suspect]
     Active Substance: CYTARABINE\DAUNORUBICIN
     Indication: Myelodysplastic syndrome
  2. MICAFUNGIN SODIUM [Concomitant]
     Active Substance: MICAFUNGIN SODIUM
     Indication: Antifungal prophylaxis

REACTIONS (6)
  - Death [Fatal]
  - Acute respiratory distress syndrome [Unknown]
  - Liver disorder [Unknown]
  - Acute myeloid leukaemia [Unknown]
  - Febrile neutropenia [Unknown]
  - Pneumonia [Unknown]
